FAERS Safety Report 6600307-3 (Version None)
Quarter: 2010Q1

REPORT INFORMATION
  Report Type: 
  Country: None (occurrence: None)
  Receive Date: 20100217
  Receipt Date: 20100203
  Transmission Date: 20100710
  Serious: Yes (Hospitalization)
  Sender: FDA-Public Use
  Company Number: BE-GDP-10407499

PATIENT
  Age: 60 Year
  Sex: Male

DRUGS (1)
  1. CLOBEX [Suspect]
     Indication: PSORIASIS
     Dosage: TOPICAL
     Route: 061

REACTIONS (3)
  - ERYSIPELAS [None]
  - PYREXIA [None]
  - SCRATCH [None]
